FAERS Safety Report 9559195 (Version 1)
Quarter: 2013Q3

REPORT INFORMATION
  Report Type: Spontaneous
  Country: US (occurrence: None)
  Receive Date: 20130906
  Receipt Date: 20130906
  Transmission Date: 20140515
  Serious: No
  Sender: FDA-Public Use
  Company Number: 163-POMAL-13062379

PATIENT
  Age: 78 Year
  Sex: Male

DRUGS (7)
  1. POMALYST (POMALIDOMIDE) (2 MILLIGRAM, CAPSULES) [Suspect]
     Indication: PLASMA CELL MYELOMA
     Route: 048
     Dates: start: 20130221
  2. ATORVASTATIN CALCIUM(ATORVASTATIN CALCIUM)(UNKNOWN) [Concomitant]
  3. CLOPIDOGREL BISULFATE(CLOPIDOGREL SULFATE)(UNKNOWN) [Concomitant]
  4. DEXAMETHASONE(DEXAMETHASONE)(UNKNOWN) [Concomitant]
  5. LOSARTAN POTASSIUM(LOSARTAN POTASSIUM)(UNKNOWN [Concomitant]
  6. METOPROLOL SUCCINATE(METOPROLOL SUCCINATE)(UNKNOWN [Concomitant]
  7. PROCRIT [Concomitant]

REACTIONS (2)
  - Pollakiuria [None]
  - Local swelling [None]
